FAERS Safety Report 16085177 (Version 1)
Quarter: 2019Q2

REPORT INFORMATION
  Report Type: Spontaneous
  Country: US (occurrence: US)
  Receive Date: 20190318
  Receipt Date: 20190318
  Transmission Date: 20190711
  Serious: Yes (Life-Threatening)
  Sender: FDA-Public Use
  Company Number: None

PATIENT
  Age: 46 Year
  Sex: Male
  Weight: 117 kg

DRUGS (3)
  1. NDC 51991-747-90 DULOXETINE DELAYED-RELEASE CAPSULES, USP 30 MG [Suspect]
     Active Substance: DULOXETINE
     Indication: DEPRESSION
     Dosage: ?          QUANTITY:1 CAPSULE(S);?
     Route: 048
     Dates: start: 20190204, end: 20190310
  2. NDC 51991-747-90 DULOXETINE DELAYED-RELEASE CAPSULES, USP 30 MG [Suspect]
     Active Substance: DULOXETINE
     Indication: ANXIETY
     Dosage: ?          QUANTITY:1 CAPSULE(S);?
     Route: 048
     Dates: start: 20190204, end: 20190310
  3. NDC 51991-747-90 DULOXETINE DELAYED-RELEASE CAPSULES, USP 30 MG [Suspect]
     Active Substance: DULOXETINE
     Indication: ATTENTION DEFICIT/HYPERACTIVITY DISORDER
     Dosage: ?          QUANTITY:1 CAPSULE(S);?
     Route: 048
     Dates: start: 20190204, end: 20190310

REACTIONS (12)
  - Stress [None]
  - Fluid retention [None]
  - Product substitution issue [None]
  - Therapeutic product effect decreased [None]
  - Anxiety [None]
  - Ventricular extrasystoles [None]
  - Supraventricular extrasystoles [None]
  - Paraesthesia [None]
  - Blood pressure increased [None]
  - Arrhythmia [None]
  - Palpitations [None]
  - Abdominal distension [None]

NARRATIVE: CASE EVENT DATE: 20190223
